FAERS Safety Report 9085323 (Version 2)
Quarter: 2013Q1

REPORT INFORMATION
  Report Type: Spontaneous
  Country: JP (occurrence: JP)
  Receive Date: 20130131
  Receipt Date: 20130307
  Transmission Date: 20140127
  Serious: Yes (Death)
  Sender: FDA-Public Use
  Company Number: JP-BAXTER-2013BAX003595

PATIENT
  Age: 76 Year
  Sex: Male
  Weight: 70 kg

DRUGS (3)
  1. FEIBA [Suspect]
     Indication: MUSCLE HAEMORRHAGE
     Route: 042
     Dates: start: 20130104, end: 20130112
  2. FEIBA [Suspect]
     Indication: ACQUIRED HAEMOPHILIA
  3. FEIBA [Suspect]
     Indication: HAEMORRHAGE PROPHYLAXIS

REACTIONS (1)
  - Intra-abdominal haemorrhage [Fatal]
